FAERS Safety Report 10617481 (Version 1)
Quarter: 2014Q4

REPORT INFORMATION
  Report Type: Spontaneous
  Country: US (occurrence: US)
  Receive Date: 20141201
  Receipt Date: 20141201
  Transmission Date: 20150529
  Serious: No
  Sender: FDA-Public Use
  Company Number: US-JNJFOC-20141116943

PATIENT
  Age: 54 Year
  Sex: Female
  Weight: 60.78 kg

DRUGS (4)
  1. GABAPENTIN. [Suspect]
     Active Substance: GABAPENTIN
     Indication: PAIN
     Route: 048
     Dates: start: 2005
  2. NUCYNTA [Suspect]
     Active Substance: TAPENTADOL HYDROCHLORIDE
     Indication: PAIN
     Dosage: 50MG TWICE A DAY
     Route: 048
  3. METHOCARBAMOL. [Suspect]
     Active Substance: METHOCARBAMOL
     Indication: PAIN
     Route: 065
     Dates: start: 2005
  4. NUCYNTA [Suspect]
     Active Substance: TAPENTADOL HYDROCHLORIDE
     Indication: PAIN
     Dosage: 100MG TWICE A DAY.
     Route: 048

REACTIONS (10)
  - Nausea [Not Recovered/Not Resolved]
  - Insomnia [Not Recovered/Not Resolved]
  - Sensation of foreign body [Recovered/Resolved]
  - Decreased appetite [Not Recovered/Not Resolved]
  - Paranoia [Unknown]
  - Musculoskeletal stiffness [Unknown]
  - Dysphagia [Recovered/Resolved]
  - Drug ineffective [Not Recovered/Not Resolved]
  - Treatment noncompliance [Unknown]
  - Body height decreased [Unknown]

NARRATIVE: CASE EVENT DATE: 201411
